FAERS Safety Report 23491015 (Version 1)
Quarter: 2024Q1

REPORT INFORMATION
  Report Type: Spontaneous
  Country: NL (occurrence: NL)
  Receive Date: 20240206
  Receipt Date: 20240206
  Transmission Date: 20240409
  Serious: Yes (Other)
  Sender: FDA-Public Use
  Company Number: NL-RECORDATI-2023000472

PATIENT
  Age: 68 Year
  Sex: Male

DRUGS (6)
  1. DICLOFENAC [Suspect]
     Active Substance: DICLOFENAC
     Indication: Tendon pain
     Dosage: UNK
     Route: 065
     Dates: start: 20240107
  2. ELIGARD [Suspect]
     Active Substance: LEUPROLIDE ACETATE
     Indication: Prostate cancer metastatic
     Dosage: 45 MILLIGRAM, EVERY 6 MONTHS
     Route: 058
     Dates: start: 20220715
  3. ELIGARD [Suspect]
     Active Substance: LEUPROLIDE ACETATE
     Dosage: 45 MILLIGRAM, EVERY 6 MONTHS
     Route: 058
     Dates: start: 20230717
  4. ELIGARD [Suspect]
     Active Substance: LEUPROLIDE ACETATE
     Dosage: 45 MILLIGRAM, EVERY 6 MONTHS
     Route: 058
     Dates: start: 20240115
  5. ELIGARD [Suspect]
     Active Substance: LEUPROLIDE ACETATE
     Dosage: 45 MILLIGRAM, EVERY 6 MONTHS
     Route: 058
     Dates: start: 20230118
  6. XTANDI [Suspect]
     Active Substance: ENZALUTAMIDE
     Indication: Prostatic specific antigen increased
     Dosage: 160 MILLIGRAM, ONCE A DAY (40 MILLIGRAM, QID (4 TABLETS DAILY OF 40 MG TOTAL 160 MG))
     Route: 065
     Dates: start: 202304

REACTIONS (12)
  - General physical health deterioration [Not Recovered/Not Resolved]
  - Pneumonia [Recovered/Resolved]
  - Prostatic specific antigen increased [Recovering/Resolving]
  - Tendon disorder [Not Recovered/Not Resolved]
  - Gait disturbance [Not Recovered/Not Resolved]
  - Tendon pain [Not Recovered/Not Resolved]
  - Memory impairment [Not Recovered/Not Resolved]
  - Oedema peripheral [Not Recovered/Not Resolved]
  - Weight increased [Not Recovered/Not Resolved]
  - Hot flush [Not Recovered/Not Resolved]
  - Diarrhoea [Unknown]
  - Drug tolerance decreased [Unknown]

NARRATIVE: CASE EVENT DATE: 20220818
